FAERS Safety Report 4685397-X (Version None)
Quarter: 2005Q2

REPORT INFORMATION
  Report Type: 
  Country: None (occurrence: None)
  Receive Date: 20050608
  Receipt Date: 20050527
  Transmission Date: 20051028
  Serious: Yes (Hospitalization)
  Sender: FDA-Public Use
  Company Number: FR-GLAXOSMITHKLINE-B0382470A

PATIENT
  Age: 1 Day
  Sex: Female
  Weight: 3.9 kg

DRUGS (3)
  1. DEROXAT [Suspect]
     Indication: ILL-DEFINED DISORDER
     Dates: end: 20040106
  2. ANAFRANIL [Suspect]
     Indication: ILL-DEFINED DISORDER
     Dates: end: 20040106
  3. IMOVANE [Suspect]
     Indication: ILL-DEFINED DISORDER
     Dates: end: 20040106

REACTIONS (12)
  - AGITATION [None]
  - AGITATION NEONATAL [None]
  - DRUG EXPOSURE DURING PREGNANCY [None]
  - EATING DISORDER [None]
  - HYPERTONIA [None]
  - HYPERTONIA NEONATAL [None]
  - HYPOTONIA [None]
  - HYPOTONIA NEONATAL [None]
  - OPISTHOTONUS [None]
  - POOR SUCKING REFLEX [None]
  - RESPIRATORY DISORDER [None]
  - RESPIRATORY DISORDER NEONATAL [None]
